FAERS Safety Report 6095735-1 (Version None)
Quarter: 2009Q1

REPORT INFORMATION
  Report Type: 
  Country: None (occurrence: None)
  Receive Date: 20090227
  Receipt Date: 20080605
  Transmission Date: 20090719
  Serious: No
  Sender: FDA-Public Use
  Company Number: A0731482A

PATIENT
  Age: 31 Year
  Sex: Female

DRUGS (2)
  1. LAMICTAL [Suspect]
     Indication: BIPOLAR DISORDER
     Dosage: 300MG PER DAY
     Route: 048
     Dates: start: 20070201, end: 20080501
  2. LITHIUM [Concomitant]

REACTIONS (3)
  - ANXIETY [None]
  - FORMICATION [None]
  - RASH [None]
